FAERS Safety Report 15735025 (Version 2)
Quarter: 2019Q2

REPORT INFORMATION
  Report Type: Spontaneous
  Country: JP (occurrence: JP)
  Receive Date: 20181218
  Receipt Date: 20190418
  Transmission Date: 20190711
  Serious: Yes (Other)
  Sender: FDA-Public Use
  Company Number: JP-ASPEN-JPG2018JP012608

PATIENT

DRUGS (11)
  1. DEXAMETHASONE. [Suspect]
     Active Substance: DEXAMETHASONE
     Indication: ANTIEMETIC SUPPORTIVE CARE
     Dosage: UNK, CYCLES 7-8
     Route: 041
  2. DEXAMETHASONE. [Concomitant]
     Active Substance: DEXAMETHASONE
     Indication: GASTRIC CANCER
     Dosage: UNK, CYCLES 1-6
     Route: 048
  3. CISPLATIN. [Concomitant]
     Active Substance: CISPLATIN
     Indication: GASTRIC CANCER
     Dosage: UNK, DAY8
     Route: 041
  4. DEXAMETHASONE. [Suspect]
     Active Substance: DEXAMETHASONE
     Indication: GASTRIC CANCER
     Dosage: UNK, CYCLES 1-6
     Route: 041
  5. SILODOSIN. [Concomitant]
     Active Substance: SILODOSIN
     Indication: BENIGN PROSTATIC HYPERPLASIA
     Dosage: UNK
     Route: 048
  6. AZASETRON HCL [Concomitant]
     Indication: ANTIEMETIC SUPPORTIVE CARE
     Dosage: 10 MG
     Route: 042
  7. GIMERACIL W/OTERACIL POTASSIUM/TEGAFUR [Concomitant]
     Active Substance: GIMERACIL\OTERACIL\TEGAFUR
     Indication: GASTRIC CANCER
     Dosage: 80 MG, FROM DAY 1 TO DAY 21
     Route: 048
  8. MAGNESIUM OXIDE. [Concomitant]
     Active Substance: MAGNESIUM OXIDE
     Indication: CONSTIPATION
     Dosage: UNK MG
     Route: 048
  9. APREPITANT. [Concomitant]
     Active Substance: APREPITANT
     Indication: ANTIEMETIC SUPPORTIVE CARE
     Dosage: 125 MG
     Route: 048
  10. DEXAMETHASONE. [Concomitant]
     Active Substance: DEXAMETHASONE
     Indication: ANTIEMETIC SUPPORTIVE CARE
     Dosage: UNK, CYCLES 7-8
     Route: 048
  11. APREPITANT. [Concomitant]
     Active Substance: APREPITANT
     Dosage: 80 MG, ON DAYS 9 AND 10
     Route: 048

REACTIONS (1)
  - Hiccups [Recovered/Resolved]
